FAERS Safety Report 8977926 (Version 1)
Quarter: 2012Q4

REPORT INFORMATION
  Report Type: 
  Country: DK (occurrence: FR)
  Receive Date: 20121220
  Receipt Date: 20121220
  Transmission Date: 20130627
  Serious: Yes (Hospitalization)
  Sender: FDA-Public Use
  Company Number: FR-FRI-1000041148

PATIENT
  Age: 87 Year
  Sex: Male

DRUGS (9)
  1. ESCITALOPRAM [Suspect]
     Indication: DEPRESSION
     Dosage: 15 mg
     Route: 048
     Dates: end: 20121025
  2. COAPROVEL [Suspect]
     Indication: HYPERTENSION
     Dosage: 150 mg/12.5 mg
     Route: 048
     Dates: end: 20121025
  3. SYMBICORT [Suspect]
     Indication: RESPIRATORY DISORDER
     Dosage: 800 mg
     Route: 050
     Dates: end: 20121030
  4. IXPRIM [Suspect]
     Route: 048
     Dates: end: 20121025
  5. XANAX [Concomitant]
  6. IMOVANE [Concomitant]
  7. ABIRATERONE ACETATE [Concomitant]
  8. DOLIPRANE [Concomitant]
  9. TRAVATAN [Concomitant]

REACTIONS (2)
  - Hypotension [Recovered/Resolved]
  - Dehydration [Recovered/Resolved]
